FAERS Safety Report 20377771 (Version 1)
Quarter: 2022Q1

REPORT INFORMATION
  Report Type: Report from Study
  Country: HN (occurrence: HN)
  Receive Date: 20220126
  Receipt Date: 20220126
  Transmission Date: 20220423
  Serious: Yes (Hospitalization)
  Sender: FDA-Public Use
  Company Number: HN-NOVARTISPH-NVSC2021HN298158

PATIENT
  Age: 64 Year
  Sex: Female
  Weight: 73.469 kg

DRUGS (7)
  1. SACUBITRIL\VALSARTAN [Suspect]
     Active Substance: SACUBITRIL\VALSARTAN
     Indication: Cardiac failure
     Dosage: 50 MG, QD (STARTED 8 YEARS AGO AND STOPPED APPROXIMATELY 3 MONTHS AGO)
     Route: 048
  2. SACUBITRIL\VALSARTAN [Suspect]
     Active Substance: SACUBITRIL\VALSARTAN
     Dosage: 100 MG, QD (APPROXIMATELY 3 MONTHS AGO)
     Route: 048
  3. DIABION [Concomitant]
     Indication: Product used for unknown indication
     Dosage: 1 DOSAGE FORM, QD (2 YEARS AGO)
     Route: 048
  4. NPH INSULIN [Concomitant]
     Active Substance: INSULIN BEEF
     Indication: Product used for unknown indication
     Dosage: (APPROXIMATELY 10 YEARS AGO)
     Route: 065
  5. CARVEDILOL [Concomitant]
     Active Substance: CARVEDILOL
     Indication: Product used for unknown indication
     Dosage: 10 MG, QD (APPROXIMATELY 3 MONTHS AGO)
     Route: 048
  6. CARBAMAZEPINE [Concomitant]
     Active Substance: CARBAMAZEPINE
     Indication: Product used for unknown indication
     Dosage: 200 MG (AT NIGHT APPROXIMATELY 25 YEARS AGO)
     Route: 048
  7. ATORVASTATIN [Concomitant]
     Active Substance: ATORVASTATIN
     Indication: Product used for unknown indication
     Dosage: 10 MG, QD (APPROXIMATELY 25 YEARS AGO)
     Route: 048

REACTIONS (5)
  - COVID-19 [Recovering/Resolving]
  - Lung disorder [Recovering/Resolving]
  - Cardiac disorder [Recovering/Resolving]
  - Movement disorder [Unknown]
  - Inappropriate schedule of product administration [Unknown]

NARRATIVE: CASE EVENT DATE: 20210901
